FAERS Safety Report 10143033 (Version 1)
Quarter: 2014Q2

REPORT INFORMATION
  Report Type: Spontaneous
  Country: CA (occurrence: CA)
  Receive Date: 20140430
  Receipt Date: 20140430
  Transmission Date: 20141212
  Serious: Yes (Other)
  Sender: FDA-Public Use
  Company Number: CA-PFIZER INC-2014117703

PATIENT
  Age: 41 Year
  Sex: Female
  Weight: 115.65 kg

DRUGS (4)
  1. CHAMPIX [Suspect]
     Dosage: 0.5 MG, 1X/DAY
  2. CHAMPIX [Suspect]
     Dosage: 0.5 MG, 2X/DAY
  3. CHAMPIX [Suspect]
     Dosage: 1 MG, 2X/DAY
  4. CELEXA [Concomitant]
     Dosage: UNK

REACTIONS (1)
  - Generalised tonic-clonic seizure [Recovered/Resolved]
